FAERS Safety Report 18793377 (Version 1)
Quarter: 2021Q1

REPORT INFORMATION
  Report Type: Spontaneous
  Country: US (occurrence: US)
  Receive Date: 20210126
  Receipt Date: 20210126
  Transmission Date: 20210419
  Serious: Yes (Hospitalization)
  Sender: FDA-Public Use
  Company Number: None

PATIENT
  Age: 69 Year
  Sex: Male
  Weight: 71.3 kg

DRUGS (2)
  1. CYTARABINE 1330 MG [Suspect]
     Active Substance: CYTARABINE
  2. DAUNORUBICIN 168MG [Suspect]
     Active Substance: DAUNORUBICIN HYDROCHLORIDE

REACTIONS (4)
  - Myocardial infarction [None]
  - Dyspnoea [None]
  - Troponin increased [None]
  - Chest pain [None]

NARRATIVE: CASE EVENT DATE: 20201119
